FAERS Safety Report 9601996 (Version 2)
Quarter: 2013Q4

REPORT INFORMATION
  Report Type: Spontaneous
  Country: JP (occurrence: JP)
  Receive Date: 20131007
  Receipt Date: 20131007
  Transmission Date: 20140711
  Serious: Yes (Other)
  Sender: FDA-Public Use
  Company Number: PHHY2013JP082938

PATIENT
  Age: 70 Year
  Sex: Male
  Weight: 52 kg

DRUGS (5)
  1. GLIVEC [Suspect]
     Indication: GASTROINTESTINAL STROMAL TUMOUR
     Dosage: 400 MG, DAILY
     Route: 048
     Dates: start: 2011, end: 2011
  2. GLIVEC [Suspect]
     Dosage: 300 MG, DAILY
     Route: 048
     Dates: start: 201109
  3. STEROID ANTIBACTERIALS [Concomitant]
     Dosage: UNK UKN, UNK
  4. DENOSUMAB [Concomitant]
     Dosage: 120 MG, EVERY 4 WEEKS
     Route: 058
  5. PREGABALIN [Concomitant]
     Dosage: UNK UKN, UNK

REACTIONS (3)
  - Pneumonia aspiration [Recovered/Resolved]
  - Sepsis [Recovered/Resolved]
  - Metastases to bone [Unknown]
